FAERS Safety Report 6166305-1 (Version None)
Quarter: 2009Q2

REPORT INFORMATION
  Report Type: 
  Country: None (occurrence: None)
  Receive Date: 20090422
  Receipt Date: 20090422
  Transmission Date: 20091009
  Serious: Yes (Hospitalization, Disabling)
  Sender: FDA-Public Use
  Company Number: None

PATIENT
  Age: 55 Year
  Sex: Male
  Weight: 101.1521 kg

DRUGS (1)
  1. EFFEXOR [Suspect]
     Dosage: 75MG ONCE/DAY; WHEN COMPLAINED RAISED DOSAGE TO 150
     Dates: start: 20051115, end: 20090111

REACTIONS (10)
  - ACQUIRED CLAW TOE [None]
  - DIZZINESS [None]
  - FALL [None]
  - HALLUCINATION [None]
  - INSOMNIA [None]
  - NERVOUS SYSTEM DISORDER [None]
  - PRURITUS [None]
  - SEXUAL DYSFUNCTION [None]
  - TREMOR [None]
  - VISUAL IMPAIRMENT [None]
